FAERS Safety Report 8691803 (Version 3)
Quarter: 2012Q4

REPORT INFORMATION
  Report Type: 
  Country: JP (occurrence: JP)
  Receive Date: 20120730
  Receipt Date: 20121005
  Transmission Date: 20130627
  Serious: Yes (Life-Threatening, Congenital Anomaly, Other)
  Sender: FDA-Public Use
  Company Number: JP-ASTRAZENECA-2012SE52891

PATIENT
  Age: 0 Day
  Sex: Female
  Weight: 1.4 kg

DRUGS (7)
  1. SEROQUEL [Suspect]
     Route: 064
     Dates: start: 20110711, end: 20120223
  2. DEPAKENE-R [Suspect]
     Route: 064
     Dates: start: 20101217, end: 20120223
  3. DEPROMEL [Suspect]
     Route: 064
     Dates: start: 20111031, end: 20120223
  4. ROHYPNOL [Suspect]
     Route: 064
     Dates: start: 20110411, end: 20120223
  5. SLOW-K [Concomitant]
     Route: 064
     Dates: end: 20120223
  6. FOLIAMIN [Concomitant]
     Route: 064
     Dates: end: 20120223
  7. THYRADIN S [Concomitant]
     Route: 064
     Dates: end: 20120223

REACTIONS (5)
  - Drug withdrawal syndrome neonatal [Recovering/Resolving]
  - Hypotonia neonatal [Recovered/Resolved]
  - Toxicity to various agents [Recovered/Resolved]
  - Low birth weight baby [Recovering/Resolving]
  - Respiratory disorder neonatal [Recovered/Resolved]
